FAERS Safety Report 6244936-8 (Version None)
Quarter: 2009Q2

REPORT INFORMATION
  Report Type: 
  Country: None (occurrence: None)
  Receive Date: 20090623
  Receipt Date: 20090623
  Transmission Date: 20091009
  Serious: No
  Sender: FDA-Public Use
  Company Number: None

PATIENT
  Age: 65 Year
  Sex: Male
  Weight: 113.3993 kg

DRUGS (8)
  1. VENLAFAXINE HCL [Suspect]
     Indication: DEPRESSION
     Dosage: 150 MG QD P.O.
     Route: 048
     Dates: start: 20090424, end: 20090508
  2. RUFINAMIDE [Concomitant]
  3. TOPAMAX [Concomitant]
  4. LOPID [Concomitant]
  5. ROSUVASTATIN CALCIUM [Concomitant]
  6. TERAZOSIN HCL [Concomitant]
  7. PRILOSEC [Concomitant]
  8. FINASTERIDE [Concomitant]

REACTIONS (2)
  - HYPERSENSITIVITY [None]
  - PRURITUS [None]
